FAERS Safety Report 8513027 (Version 2)
Quarter: 2013Q1

REPORT INFORMATION
  Report Type: Spontaneous
  Country: ES (occurrence: ES)
  Receive Date: 20120413
  Receipt Date: 20130321
  Transmission Date: 20140127
  Serious: Yes (Hospitalization, Other)
  Sender: FDA-Public Use
  Company Number: ES-ELI_LILLY_AND_COMPANY-ES201204002268

PATIENT
  Sex: Male

DRUGS (2)
  1. FORSTEO [Suspect]
     Dosage: UNK, UNKNOWN
     Route: 065
     Dates: start: 20111020
  2. FORSTEO [Suspect]
     Dosage: UNK, UNKNOWN
     Route: 065

REACTIONS (6)
  - Cardiac disorder [Unknown]
  - Pneumonia [Unknown]
  - Arrhythmia [Unknown]
  - Viral infection [Unknown]
  - Diarrhoea [Unknown]
  - Nasopharyngitis [Unknown]
